FAERS Safety Report 10487324 (Version 1)
Quarter: 2014Q4

REPORT INFORMATION
  Report Type: Spontaneous
  Country: JP (occurrence: JP)
  Receive Date: 20141001
  Receipt Date: 20141001
  Transmission Date: 20150528
  Serious: Yes (Hospitalization, Other)
  Sender: FDA-Public Use
  Company Number: PHHY2014JP126891

PATIENT
  Age: 27 Year
  Sex: Male

DRUGS (11)
  1. ISONIAZID. [Suspect]
     Active Substance: ISONIAZID
     Dosage: 700 MG/DAY
     Route: 048
  2. PREDNISOLONE. [Suspect]
     Active Substance: PREDNISOLONE
     Dosage: 5 MG/DAY
     Route: 048
  3. ISONIAZID. [Suspect]
     Active Substance: ISONIAZID
     Dosage: 300 MG/DAY
     Route: 048
  4. ISONIAZID. [Suspect]
     Active Substance: ISONIAZID
     Indication: MENINGITIS TUBERCULOUS
     Dosage: 750 MG/DAY
     Route: 048
  5. ETHAMBUTOL [Suspect]
     Active Substance: ETHAMBUTOL HYDROCHLORIDE
     Indication: MENINGITIS TUBERCULOUS
  6. ISONIAZID. [Suspect]
     Active Substance: ISONIAZID
     Dosage: 750 MG/DAY
     Route: 048
  7. PYRAZINAMIDE. [Suspect]
     Active Substance: PYRAZINAMIDE
     Indication: MENINGITIS TUBERCULOUS
  8. PREDNISOLONE. [Suspect]
     Active Substance: PREDNISOLONE
     Indication: MENINGITIS TUBERCULOUS
     Dosage: 40 MG/DAY
     Route: 048
  9. RIFAMPICIN [Suspect]
     Active Substance: RIFAMPIN
     Indication: MENINGITIS TUBERCULOUS
     Dosage: 600 MG/DAY
  10. DEXAMETHASONE. [Suspect]
     Active Substance: DEXAMETHASONE
     Indication: MENINGITIS TUBERCULOUS
     Route: 042
  11. ISONIAZID. [Suspect]
     Active Substance: ISONIAZID
     Indication: MENINGITIS TUBERCULOUS
     Route: 065

REACTIONS (15)
  - White matter lesion [Recovering/Resolving]
  - Altered state of consciousness [Recovering/Resolving]
  - Disturbance in attention [Not Recovered/Not Resolved]
  - Hepatic function abnormal [Recovering/Resolving]
  - Hemiplegia [Recovering/Resolving]
  - Dyskinesia [Recovered/Resolved]
  - Seizure [Recovering/Resolving]
  - Meningitis tuberculous [Unknown]
  - Dyslalia [Recovered/Resolved]
  - Decreased immune responsiveness [Unknown]
  - Disinhibition [Not Recovered/Not Resolved]
  - Memory impairment [Not Recovered/Not Resolved]
  - Dysphagia [Recovered/Resolved]
  - Muscular weakness [Recovered/Resolved]
  - Disease recurrence [Unknown]
